FAERS Safety Report 7704619-1 (Version None)
Quarter: 2011Q3

REPORT INFORMATION
  Report Type: 
  Country: None (occurrence: None)
  Receive Date: 20110823
  Receipt Date: 20110819
  Transmission Date: 20111222
  Serious: Yes (Other)
  Sender: FDA-Public Use
  Company Number: US-GLAXOSMITHKLINE-A0941729A

PATIENT
  Age: 87 Year
  Sex: Female

DRUGS (2)
  1. HORIZANT [Suspect]
     Indication: RESTLESS LEGS SYNDROME
     Dosage: 600MG PER DAY
     Route: 048
  2. UNKNOWN [Concomitant]

REACTIONS (4)
  - HALLUCINATION [None]
  - DIZZINESS [None]
  - RASH [None]
  - URTICARIA [None]
